FAERS Safety Report 9556219 (Version 1)
Quarter: 2013Q3

REPORT INFORMATION
  Report Type: Spontaneous
  Country: US (occurrence: None)
  Receive Date: 20130906
  Receipt Date: 20130906
  Transmission Date: 20140515
  Serious: Yes (Hospitalization, Other)
  Sender: FDA-Public Use
  Company Number: 163-POMAL-13063398

PATIENT
  Age: 80 Year
  Sex: Male
  Weight: 58.97 kg

DRUGS (1)
  1. POMALYST [Suspect]
     Indication: PLASMA CELL MYELOMA
     Dosage: 2 MG, 1 IN 1 D, PO
     Route: 048
     Dates: start: 20130524

REACTIONS (1)
  - Renal failure acute [None]
